FAERS Safety Report 4412224-8 (Version None)
Quarter: 2004Q3

REPORT INFORMATION
  Report Type: 
  Country: None (occurrence: None)
  Receive Date: 20040727
  Receipt Date: 20040712
  Transmission Date: 20050211
  Serious: Yes (Other)
  Sender: FDA-Public Use
  Company Number: 179211

PATIENT
  Sex: Male

DRUGS (1)
  1. AVONEX [Suspect]
     Indication: MULTIPLE SCLEROSIS
     Dates: start: 19981201

REACTIONS (2)
  - B-CELL LYMPHOMA RECURRENT [None]
  - NON-HODGKIN'S LYMPHOMA RECURRENT [None]
